FAERS Safety Report 24566479 (Version 1)
Quarter: 2024Q4

REPORT INFORMATION
  Report Type: Spontaneous
  Country: US (occurrence: None)
  Receive Date: 20241029
  Receipt Date: 20241029
  Transmission Date: 20250114
  Serious: Yes (unspecified)
  Sender: Public
  Company Number: None

PATIENT
  Age: 26 Year
  Sex: Female
  Weight: 54.88 kg

DRUGS (1)
  1. ETONOGESTREL AND ETHINYL ESTRADIOL VAGINAL [Suspect]
     Active Substance: ETHINYL ESTRADIOL\ETONOGESTREL
     Indication: Contraception
     Dosage: OTHER QUANTITY : 1 RING;?FREQUENCY : MONTHLY;?
     Route: 067

REACTIONS (5)
  - Libido decreased [None]
  - Alopecia [None]
  - Product substitution issue [None]
  - Sexual dysfunction [None]
  - Anxiety [None]

NARRATIVE: CASE EVENT DATE: 20190715
